FAERS Safety Report 15098892 (Version 1)
Quarter: 2018Q3

REPORT INFORMATION
  Report Type: Spontaneous
  Country: US (occurrence: US)
  Receive Date: 20180702
  Receipt Date: 20180702
  Transmission Date: 20181010
  Serious: Yes (Other)
  Sender: FDA-Public Use
  Company Number: US-PFIZER INC-2018262430

PATIENT
  Age: 50 Year
  Sex: Female

DRUGS (2)
  1. SILDENAFIL CITRATE. [Suspect]
     Active Substance: SILDENAFIL CITRATE
     Dosage: UNK
  2. TYVASO [Suspect]
     Active Substance: TREPROSTINIL
     Indication: PULMONARY ARTERIAL HYPERTENSION
     Dosage: 48 UG, 4X/DAY (8 BREATHS)
     Dates: start: 20131101

REACTIONS (4)
  - Drug hypersensitivity [Recovering/Resolving]
  - Pruritus generalised [Recovering/Resolving]
  - Dyspnoea [Unknown]
  - Rash [Recovering/Resolving]
